FAERS Safety Report 5333106-3 (Version None)
Quarter: 2007Q2

REPORT INFORMATION
  Report Type: 
  Country: None (occurrence: None)
  Receive Date: 20070521
  Receipt Date: 20070521
  Transmission Date: 20071010
  Serious: Yes (Death, Hospitalization)
  Sender: FDA-Public Use
  Company Number: None

PATIENT
  Age: 74 Year
  Sex: Male
  Weight: 58.9676 kg

DRUGS (3)
  1. OXALIPLATIN [Suspect]
     Indication: GASTRIC CANCER
  2. DOCETAXEL [Suspect]
     Indication: GASTRIC CANCER
  3. FLUOROURACIL [Suspect]
     Indication: GASTRIC CANCER

REACTIONS (4)
  - CLOSTRIDIAL INFECTION [None]
  - DIARRHOEA [None]
  - HYPOTENSION [None]
  - NEUTROPENIA [None]
